FAERS Safety Report 9800062 (Version 3)
Quarter: 2015Q3

REPORT INFORMATION
  Report Type: Spontaneous
  Country: US (occurrence: US)
  Receive Date: 20140106
  Receipt Date: 20150806
  Transmission Date: 20151125
  Serious: Yes (Other)
  Sender: FDA-Public Use
  Company Number: US-GILEAD-2010-0030949

PATIENT
  Age: 55 Year
  Sex: Female
  Weight: 94.35 kg

DRUGS (15)
  1. ALTACE [Concomitant]
     Active Substance: RAMIPRIL
  2. LIPITOR [Concomitant]
     Active Substance: ATORVASTATIN CALCIUM
  3. LEVEMIR [Concomitant]
     Active Substance: INSULIN DETEMIR
  4. CEPHALEXIN. [Concomitant]
     Active Substance: CEPHALEXIN
  5. V-R FERROUS SULFATE [Concomitant]
  6. ASPIRIN. [Concomitant]
     Active Substance: ASPIRIN
  7. CARVEDILOL. [Concomitant]
     Active Substance: CARVEDILOL
  8. LETAIRIS [Suspect]
     Active Substance: AMBRISENTAN
     Indication: PULMONARY ARTERIAL HYPERTENSION
     Route: 048
     Dates: start: 20070928
  9. DIGOXIN. [Concomitant]
     Active Substance: DIGOXIN
  10. AMOXICILLIN. [Concomitant]
     Active Substance: AMOXICILLIN
  11. GLYBURIDE-METFORMIN [Concomitant]
  12. LORAZEPAM. [Concomitant]
     Active Substance: LORAZEPAM
  13. FUROSEMIDE. [Concomitant]
     Active Substance: FUROSEMIDE
  14. PENICILLIN VK [Concomitant]
     Active Substance: PENICILLIN V POTASSIUM
  15. CORTISONE AC [Concomitant]

REACTIONS (2)
  - Oedema [Unknown]
  - Liver function test abnormal [Unknown]
